FAERS Safety Report 14497679 (Version 1)
Quarter: 2018Q1

REPORT INFORMATION
  Report Type: Spontaneous
  Country: AU (occurrence: AU)
  Receive Date: 20180207
  Receipt Date: 20180207
  Transmission Date: 20180509
  Serious: Yes (Hospitalization)
  Sender: FDA-Public Use
  Company Number: AU-JNJFOC-20180201864

PATIENT
  Age: 23 Year
  Sex: Male

DRUGS (2)
  1. INVEGA SUSTENNA [Suspect]
     Active Substance: PALIPERIDONE PALMITATE
     Indication: PRODUCT USED FOR UNKNOWN INDICATION
     Dosage: DELTOID MUSCLE
     Route: 030
     Dates: start: 20180115
  2. INVEGA SUSTENNA [Suspect]
     Active Substance: PALIPERIDONE PALMITATE
     Indication: PRODUCT USED FOR UNKNOWN INDICATION
     Dosage: LEFT DELTOID MUSCLE
     Route: 030
     Dates: start: 20180118

REACTIONS (5)
  - Inappropriate schedule of drug administration [Unknown]
  - Off label use [Unknown]
  - Incorrect dose administered [Unknown]
  - Hospitalisation [Unknown]
  - Vision blurred [Unknown]

NARRATIVE: CASE EVENT DATE: 20180118
